FAERS Safety Report 21784628 (Version 10)
Quarter: 2024Q1

REPORT INFORMATION
  Report Type: Report from Study
  Country: CA (occurrence: CA)
  Receive Date: 20221227
  Receipt Date: 20240227
  Transmission Date: 20240410
  Serious: Yes (Other)
  Sender: FDA-Public Use
  Company Number: CA-ASTELLAS-2022US045360

PATIENT
  Age: 10 Year
  Sex: Male
  Weight: 36 kg

DRUGS (22)
  1. TACROLIMUS [Suspect]
     Active Substance: TACROLIMUS
     Indication: Product used for unknown indication
     Route: 065
  2. TACROLIMUS [Suspect]
     Active Substance: TACROLIMUS
     Route: 065
  3. ACTEMRA [Suspect]
     Active Substance: TOCILIZUMAB
     Indication: Kidney transplant rejection
     Dosage: 240 MG, OTHER (1 EVERY 4 WEEKS)
     Route: 042
     Dates: start: 20190927, end: 20200924
  4. ACTEMRA [Suspect]
     Active Substance: TOCILIZUMAB
     Dosage: 270 MG, OTHER (1 EVERY 4 WEEKS)
     Route: 042
     Dates: start: 20210204, end: 20220114
  5. ACTEMRA [Suspect]
     Active Substance: TOCILIZUMAB
     Dosage: 280 MG, OTHER (1 EVERY 4 WEEKS)
     Route: 042
     Dates: start: 20220114, end: 20220311
  6. ACTEMRA [Suspect]
     Active Substance: TOCILIZUMAB
     Dosage: 296 MG, OTHER (1 EVERY 4 WEEKS)
     Route: 042
     Dates: start: 20220408, end: 20220421
  7. ACTEMRA [Suspect]
     Active Substance: TOCILIZUMAB
     Dosage: 304 MG, OTHER (1 EVERY 4 WEEKS)
     Route: 042
     Dates: start: 20230519
  8. ACTEMRA [Suspect]
     Active Substance: TOCILIZUMAB
     Indication: Kidney transplant rejection
     Dosage: 240 MG, OTHER (1 EVERY 4 WEEKS)
     Route: 042
  9. MYCOPHENOLATE MOFETIL [Suspect]
     Active Substance: MYCOPHENOLATE MOFETIL
     Indication: Product used for unknown indication
     Dosage: UNK UNK, UNKNOWN FREQ.
     Route: 065
  10. RITUXIMAB [Suspect]
     Active Substance: RITUXIMAB
     Indication: Transplant rejection
     Dosage: UNK UNK, UNKNOWN FREQ.
     Route: 065
  11. TACROLIMUS [Concomitant]
     Active Substance: TACROLIMUS
     Indication: Product used for unknown indication
     Route: 065
  12. FERROUS SULFATE [Concomitant]
     Active Substance: FERROUS SULFATE
     Indication: Product used for unknown indication
     Dosage: UNK UNK, UNKNOWN FREQ.
     Route: 065
  13. IRON [Concomitant]
     Active Substance: IRON
     Indication: Product used for unknown indication
     Dosage: UNK UNK, UNKNOWN FREQ.
     Route: 065
  14. MELATONIN [Concomitant]
     Active Substance: MELATONIN
     Indication: Product used for unknown indication
     Dosage: UNK UNK, UNKNOWN FREQ.
     Route: 065
  15. METHYLPREDNISOLONE [Concomitant]
     Active Substance: METHYLPREDNISOLONE
     Indication: Transplant rejection
     Dosage: 10MG/KG, 3 DOSES UNKNOWN FREQ.
     Route: 065
  16. PREDNISONE [Concomitant]
     Active Substance: PREDNISONE
     Indication: Product used for unknown indication
     Dosage: UNK UNK, UNKNOWN FREQ.
     Route: 065
  17. SEPTRA [Concomitant]
     Active Substance: SULFAMETHOXAZOLE\TRIMETHOPRIM
     Indication: Product used for unknown indication
     Dosage: UNK UNK, UNKNOWN FREQ.
     Route: 065
  18. SODIUM CHLORIDE [Concomitant]
     Active Substance: SODIUM CHLORIDE
     Indication: Product used for unknown indication
     Dosage: UNK UNK, UNKNOWN FREQ.
     Route: 065
  19. THYMOGLOBULIN [Concomitant]
     Active Substance: LAPINE T-LYMPHOCYTE IMMUNE GLOBULIN
     Indication: Transplant rejection
     Dosage: 60 MG, UNKNOWN FREQ.(POWDER FOR SOLUTION INTRAVENOUS)
     Route: 042
  20. AMOXICILLIN [Concomitant]
     Active Substance: AMOXICILLIN
     Indication: Product used for unknown indication
     Dosage: UNK UNK, UNKNOWN FREQ.
     Route: 065
  21. FOSINOPRIL [Concomitant]
     Active Substance: FOSINOPRIL
     Indication: Hypertension
     Dosage: UNK UNK, UNKNOWN FREQ.
     Route: 065
  22. MYCOPHENOLATE MOFETIL [Concomitant]
     Active Substance: MYCOPHENOLATE MOFETIL
     Indication: Product used for unknown indication
     Dosage: UNK, UNKNOWN FREQ.
     Route: 065

REACTIONS (30)
  - Blood pressure diastolic abnormal [Recovered/Resolved]
  - Blood creatinine increased [Recovered/Resolved]
  - Blood pressure diastolic decreased [Recovered/Resolved]
  - Blood pressure systolic decreased [Recovered/Resolved]
  - Renal tubular disorder [Recovered/Resolved]
  - Cough [Recovered/Resolved]
  - Glomerulonephritis [Recovered/Resolved]
  - Headache [Recovered/Resolved]
  - Heart rate increased [Recovered/Resolved]
  - Renal tubular injury [Recovered/Resolved]
  - Leukopenia [Recovered/Resolved]
  - Mouth ulceration [Recovered/Resolved]
  - Nasal congestion [Recovered/Resolved]
  - Nausea [Recovered/Resolved]
  - Chronic allograft nephropathy [Recovered/Resolved]
  - Neutropenia [Recovered/Resolved]
  - Respiratory rate increased [Recovered/Resolved]
  - Skin papilloma [Recovered/Resolved]
  - Tubulointerstitial nephritis [Recovered/Resolved]
  - Vessel puncture site pain [Recovered/Resolved]
  - White blood cell count decreased [Recovered/Resolved]
  - Skin papilloma [Recovered/Resolved]
  - Tubulointerstitial nephritis [Recovered/Resolved]
  - Blood pressure increased [Recovered/Resolved]
  - Influenza [Recovered/Resolved]
  - Weight increased [Recovered/Resolved]
  - Hypotension [Recovered/Resolved]
  - Weight decreased [Recovered/Resolved]
  - Blood phosphorus increased [Recovered/Resolved]
  - Off label use [Recovered/Resolved]

NARRATIVE: CASE EVENT DATE: 20190101
